FAERS Safety Report 18218157 (Version 1)
Quarter: 2020Q3

REPORT INFORMATION
  Report Type: Spontaneous
  Country: FR (occurrence: FR)
  Receive Date: 20200901
  Receipt Date: 20200901
  Transmission Date: 20201103
  Serious: Yes (Other)
  Sender: FDA-Public Use
  Company Number: FR-AMGEN-FRASP2020139561

PATIENT
  Age: 66 Year
  Sex: Female
  Weight: 52 kg

DRUGS (8)
  1. EMEND [Suspect]
     Active Substance: APREPITANT
     Indication: PROPHYLAXIS OF NAUSEA AND VOMITING
     Dosage: UNK
     Route: 048
     Dates: start: 20200610, end: 20200612
  2. ASPEGIC [ACETYLSALICYLATE LYSINE] [Concomitant]
     Active Substance: ASPIRIN DL-LYSINE
     Dosage: UNK
     Route: 048
  3. SOLU?MEDROL [Suspect]
     Active Substance: METHYLPREDNISOLONE SODIUM SUCCINATE
     Indication: PROPHYLAXIS OF NAUSEA AND VOMITING
     Dosage: UNK
     Route: 042
     Dates: start: 20200610, end: 20200610
  4. DIAMICRON [Concomitant]
     Active Substance: GLICLAZIDE
     Dosage: UNK
  5. ZOPHREN [ONDANSETRON HYDROCHLORIDE] [Suspect]
     Active Substance: ONDANSETRON
     Indication: PROPHYLAXIS OF NAUSEA AND VOMITING
     Dosage: UNK
     Route: 042
     Dates: start: 20200610, end: 20200610
  6. GLUCOPHAGE [Concomitant]
     Active Substance: METFORMIN HYDROCHLORIDE
     Route: 048
  7. VOGALENE [Suspect]
     Active Substance: METOPIMAZINE
     Indication: VOMITING
     Dosage: 15 MILLIGRAM
     Route: 048
     Dates: start: 20200610
  8. NEULASTA [Suspect]
     Active Substance: PEGFILGRASTIM
     Indication: PROPHYLAXIS OF NAUSEA AND VOMITING
     Dosage: UNK
     Route: 058
     Dates: start: 20200611, end: 20200611

REACTIONS (1)
  - Hepatitis cholestatic [Recovering/Resolving]

NARRATIVE: CASE EVENT DATE: 20200630
